FAERS Safety Report 12474573 (Version 1)
Quarter: 2016Q2

REPORT INFORMATION
  Report Type: Spontaneous
  Country: CA (occurrence: CA)
  Receive Date: 20160617
  Receipt Date: 20160617
  Transmission Date: 20160815
  Serious: Yes (Other)
  Sender: FDA-Public Use
  Company Number: CA-TEVA-667590ACC

PATIENT
  Sex: Male

DRUGS (2)
  1. ACT-QUETIAPINE [Concomitant]
     Dosage: 25 MILLIGRAM DAILY; 1 TABLET AT BEDTIME
  2. QUETIAPINE FUMARATE XR 200MG [Suspect]
     Active Substance: QUETIAPINE FUMARATE
     Dosage: 400 MILLIGRAM DAILY; 1 TABLET TWICE DAILY (MORNING AND EVENING)
     Dates: start: 2014

REACTIONS (7)
  - Weight increased [Unknown]
  - Freezing phenomenon [Not Recovered/Not Resolved]
  - Anger [Not Recovered/Not Resolved]
  - Intentional self-injury [Not Recovered/Not Resolved]
  - Gait disturbance [Not Recovered/Not Resolved]
  - Aggression [Not Recovered/Not Resolved]
  - Constipation [Unknown]
